FAERS Safety Report 7546158-7 (Version None)
Quarter: 2011Q2

REPORT INFORMATION
  Report Type: 
  Country: None (occurrence: None)
  Receive Date: 20110614
  Receipt Date: 20030922
  Transmission Date: 20111010
  Serious: Yes (Other)
  Sender: FDA-Public Use
  Company Number: PHFR2003GB03457

PATIENT
  Sex: Male

DRUGS (4)
  1. FLUOXETINE [Concomitant]
     Indication: DEPRESSION
     Dosage: 20 MG, QD
     Route: 048
     Dates: start: 20010801
  2. SENNA-MINT WAF [Concomitant]
     Indication: CONSTIPATION
     Route: 048
  3. CLOZAPINE [Suspect]
     Dosage: 600 MG, QD
     Route: 048
     Dates: start: 19900702
  4. BISACODYL [Concomitant]
     Indication: CONSTIPATION
     Dosage: 5 MG, PRN
     Route: 048

REACTIONS (7)
  - TACHYCARDIA [None]
  - CHEST PAIN [None]
  - LEFT ATRIAL DILATATION [None]
  - GAIT DISTURBANCE [None]
  - ELECTROCARDIOGRAM ABNORMAL [None]
  - RIGHT VENTRICULAR HYPERTROPHY [None]
  - ASTHENIA [None]
